FAERS Safety Report 5345330-4 (Version None)
Quarter: 2007Q2

REPORT INFORMATION
  Report Type: 
  Country: None (occurrence: None)
  Receive Date: 20070601
  Receipt Date: 20070521
  Transmission Date: 20071010
  Serious: Yes (Hospitalization)
  Sender: FDA-Public Use
  Company Number: 07-001138

PATIENT
  Age: 19 Year
  Sex: Female
  Weight: 48.5 kg

DRUGS (2)
  1. LOESTRIN 24 FE [Suspect]
     Indication: CONTRACEPTION
     Dosage: 20/1000 UG, QD, ORAL
     Route: 048
     Dates: start: 20070515
  2. DOXYCYCLINE (DOXYCYCLINE) CAPSULE, 75MG [Suspect]
     Indication: VAGINAL INFECTION
     Dosage: ORAL
     Route: 048
     Dates: start: 20070501, end: 20070520

REACTIONS (6)
  - DRUG ADMINISTRATION ERROR [None]
  - DYSPNOEA [None]
  - MENORRHAGIA [None]
  - NAUSEA [None]
  - VAGINAL INFECTION [None]
  - VOMITING [None]
